FAERS Safety Report 5933441-1 (Version None)
Quarter: 2008Q4

REPORT INFORMATION
  Report Type: 
  Country: None (occurrence: None)
  Receive Date: 20081023
  Receipt Date: 20081016
  Transmission Date: 20090506
  Serious: Yes (Other)
  Sender: FDA-Public Use
  Company Number: 2007BI000903

PATIENT
  Age: 45 Year
  Sex: Female

DRUGS (3)
  1. AVONEX [Suspect]
     Indication: MULTIPLE SCLEROSIS
     Dosage: 30 UG;QW;IM 30 UG;QW;IM 30 UG;IM
     Route: 030
     Dates: start: 19960101, end: 20030101
  2. AVONEX [Suspect]
     Indication: MULTIPLE SCLEROSIS
     Dosage: 30 UG;QW;IM 30 UG;QW;IM 30 UG;IM
     Route: 030
     Dates: start: 20030101, end: 20061002
  3. AVONEX [Suspect]
     Indication: MULTIPLE SCLEROSIS
     Dosage: 30 UG;QW;IM 30 UG;QW;IM 30 UG;IM
     Route: 030
     Dates: end: 20080801

REACTIONS (2)
  - HEPATIC ENZYME INCREASED [None]
  - MALIGNANT HAEMANGIOPERICYTOMA [None]
